FAERS Safety Report 8876560 (Version 5)
Quarter: 2012Q4

REPORT INFORMATION
  Report Type: 
  Country: US (occurrence: US)
  Receive Date: 20121029
  Receipt Date: 20121212
  Transmission Date: 20130627
  Serious: Yes (Death, Hospitalization)
  Sender: FDA-Public Use
  Company Number: US-GILEAD-2012-0063622

PATIENT
  Age: 45 Year
  Sex: Male

DRUGS (6)
  1. LETAIRIS [Suspect]
     Indication: COR PULMONALE CHRONIC
     Dosage: 5 mg, QD
     Route: 048
     Dates: start: 20120402
  2. LETAIRIS [Suspect]
     Dates: start: 20120430
  3. LETAIRIS [Suspect]
     Dates: start: 20120402
  4. EPOPROSTENOL [Concomitant]
  5. VIAGRA [Concomitant]
  6. VELETRI [Concomitant]

REACTIONS (5)
  - Death [Fatal]
  - Gastrointestinal haemorrhage [Unknown]
  - Large intestine polyp [Unknown]
  - Colon cancer [Unknown]
  - Staphylococcal infection [Unknown]
